FAERS Safety Report 10194039 (Version 1)
Quarter: 2014Q2

REPORT INFORMATION
  Report Type: Spontaneous
  Country: US (occurrence: US)
  Receive Date: 20140524
  Receipt Date: 20140524
  Transmission Date: 20141212
  Serious: No
  Sender: FDA-Public Use
  Company Number: US-SANOFI-AVENTIS-2013SA064959

PATIENT
  Age: 75 Year
  Sex: Female
  Weight: 63.5 kg

DRUGS (8)
  1. LANTUS SOLOSTAR [Suspect]
     Indication: TYPE 2 DIABETES MELLITUS
     Dosage: DOSE:50 UNIT(S)
     Route: 051
     Dates: start: 20130421
  2. SOLOSTAR [Suspect]
     Indication: TYPE 2 DIABETES MELLITUS
     Dates: start: 201304
  3. AMLODIPINE BESILATE [Concomitant]
     Dosage: FREQUENCY:EVERY MORNING AND NIGHT DOSE:5 UNIT(S)
  4. SYNTHROID [Concomitant]
     Indication: THYROID DISORDER
     Route: 065
     Dates: start: 20130404
  5. ZOCOR [Concomitant]
     Route: 065
     Dates: start: 20130508
  6. NEURONTIN [Concomitant]
     Indication: PAIN IN EXTREMITY
     Dosage: PRODUCT START DATE: 3 YEARS
     Route: 065
  7. NEXIUM [Concomitant]
     Dosage: PRODUCT START DATE: 3 YEARS
     Route: 065
  8. AVAPRO [Concomitant]
     Indication: HYPERTENSION
     Dosage: PRODUCT START DATE: 63 YEARS
     Route: 065

REACTIONS (1)
  - Feeling abnormal [Unknown]
